FAERS Safety Report 4426264-6 (Version None)
Quarter: 2004Q3

REPORT INFORMATION
  Report Type: 
  Country: None (occurrence: None)
  Receive Date: 20040811
  Receipt Date: 20040803
  Transmission Date: 20050211
  Serious: Yes (Hospitalization, Other)
  Sender: FDA-Public Use
  Company Number: HQWYE767603AUG04

PATIENT
  Age: 51 Year
  Sex: Female

DRUGS (2)
  1. EFFEXOR [Suspect]
     Dosage: 275 MG
     Route: 048
  2. BENADRYL [Suspect]

REACTIONS (3)
  - BLOOD PRESSURE INCREASED [None]
  - CEREBROVASCULAR ACCIDENT [None]
  - DRUG INTERACTION [None]
